FAERS Safety Report 4315071-0 (Version None)
Quarter: 2004Q1

REPORT INFORMATION
  Report Type: 
  Country: None (occurrence: None)
  Receive Date: 20040310
  Receipt Date: 20040209
  Transmission Date: 20041129
  Serious: Yes (Hospitalization)
  Sender: FDA-Public Use
  Company Number: PHFR2004GB00992

PATIENT
  Age: 64 Year
  Sex: Female

DRUGS (1)
  1. CLOZARIL [Suspect]
     Indication: SCHIZOPHRENIA
     Route: 048
     Dates: start: 20001017

REACTIONS (6)
  - INVESTIGATION ABNORMAL [None]
  - LEUKOERYTHROBLASTIC ANAEMIA [None]
  - PLATELET COUNT DECREASED [None]
  - RED BLOOD CELL COUNT INCREASED [None]
  - RED BLOOD CELL SPHEROCYTES PRESENT [None]
  - WHITE BLOOD CELL COUNT INCREASED [None]
